FAERS Safety Report 21592665 (Version 2)
Quarter: 2022Q4

REPORT INFORMATION
  Report Type: Spontaneous
  Country: CN (occurrence: CN)
  Receive Date: 20221114
  Receipt Date: 20221123
  Transmission Date: 20230112
  Serious: Yes (Other)
  Sender: FDA-Public Use
  Company Number: CN-BAYER-2022A158196

PATIENT
  Age: 71 Year
  Sex: Female
  Weight: 55 kg

DRUGS (42)
  1. GLUCOBAY [Suspect]
     Active Substance: ACARBOSE
     Indication: Type 2 diabetes mellitus
     Dosage: 100 MG, TID
     Route: 048
     Dates: start: 20221103, end: 20221110
  2. ADALAT [Suspect]
     Active Substance: NIFEDIPINE
     Indication: Hypertension
     Dosage: 30 MG, QD
     Route: 048
     Dates: start: 20221103, end: 20221109
  3. HERBALS [Suspect]
     Active Substance: HERBALS
     Indication: Cerebral infarction
     Dosage: 3 DF, TID
     Route: 048
     Dates: start: 20221103, end: 20221108
  4. HERBALS [Suspect]
     Active Substance: HERBALS
     Indication: Cerebral haemorrhage
  5. HERBALS [Suspect]
     Active Substance: HERBALS
     Indication: Convalescent
  6. HERBALS [Suspect]
     Active Substance: HERBALS
     Indication: Type 2 diabetes mellitus
  7. HERBALS [Suspect]
     Active Substance: HERBALS
     Indication: Hypertension
  8. PIRACETAM [Suspect]
     Active Substance: PIRACETAM
     Indication: Type 2 diabetes mellitus
     Dosage: 800 MG, TID
     Route: 048
     Dates: start: 20221103, end: 20221110
  9. PIRACETAM [Suspect]
     Active Substance: PIRACETAM
     Indication: Hypertension
  10. PIRACETAM [Suspect]
     Active Substance: PIRACETAM
     Indication: Cerebral haemorrhage
  11. PIRACETAM [Suspect]
     Active Substance: PIRACETAM
     Indication: Cerebral infarction
  12. PIRACETAM [Suspect]
     Active Substance: PIRACETAM
     Indication: Convalescent
  13. HERBALS [Suspect]
     Active Substance: HERBALS
     Indication: Convalescent
     Dosage: 20 ML, BID
     Route: 048
     Dates: start: 20221103, end: 20221108
  14. HERBALS [Suspect]
     Active Substance: HERBALS
     Indication: Cerebral haemorrhage
  15. HERBALS [Suspect]
     Active Substance: HERBALS
     Indication: Cerebral infarction
  16. HERBALS [Suspect]
     Active Substance: HERBALS
     Indication: Hypertension
  17. HERBALS [Suspect]
     Active Substance: HERBALS
     Indication: Type 2 diabetes mellitus
  18. METFORMIN HYDROCHLORIDE [Suspect]
     Active Substance: METFORMIN HYDROCHLORIDE
     Indication: Type 2 diabetes mellitus
     Dosage: 500 MG, TID
     Route: 048
     Dates: start: 20221103, end: 20221110
  19. METFORMIN HYDROCHLORIDE [Suspect]
     Active Substance: METFORMIN HYDROCHLORIDE
     Indication: Hypertension
  20. METFORMIN HYDROCHLORIDE [Suspect]
     Active Substance: METFORMIN HYDROCHLORIDE
     Indication: Cerebral infarction
  21. METFORMIN HYDROCHLORIDE [Suspect]
     Active Substance: METFORMIN HYDROCHLORIDE
     Indication: Cerebral haemorrhage
  22. METFORMIN HYDROCHLORIDE [Suspect]
     Active Substance: METFORMIN HYDROCHLORIDE
     Indication: Convalescent
  23. BETAHISTINE HYDROCHLORIDE [Suspect]
     Active Substance: BETAHISTINE HYDROCHLORIDE
     Indication: Type 2 diabetes mellitus
     Dosage: 4 MG, TID
     Route: 048
     Dates: start: 20221103, end: 20221110
  24. BETAHISTINE HYDROCHLORIDE [Suspect]
     Active Substance: BETAHISTINE HYDROCHLORIDE
     Indication: Convalescent
  25. BETAHISTINE HYDROCHLORIDE [Suspect]
     Active Substance: BETAHISTINE HYDROCHLORIDE
     Indication: Cerebral haemorrhage
  26. BETAHISTINE HYDROCHLORIDE [Suspect]
     Active Substance: BETAHISTINE HYDROCHLORIDE
     Indication: Cerebral infarction
  27. BETAHISTINE HYDROCHLORIDE [Suspect]
     Active Substance: BETAHISTINE HYDROCHLORIDE
     Indication: Hypertension
  28. ORYZANOL [Suspect]
     Active Substance: GAMMA ORYZANOL
     Indication: Hypertension
     Dosage: 20 MG, TID
     Route: 048
     Dates: start: 20221003, end: 20221108
  29. ORYZANOL [Suspect]
     Active Substance: GAMMA ORYZANOL
     Indication: Type 2 diabetes mellitus
  30. ORYZANOL [Suspect]
     Active Substance: GAMMA ORYZANOL
     Indication: Convalescent
  31. ORYZANOL [Suspect]
     Active Substance: GAMMA ORYZANOL
     Indication: Cerebral haemorrhage
  32. ORYZANOL [Suspect]
     Active Substance: GAMMA ORYZANOL
     Indication: Cerebral infarction
  33. SIMVASTATIN [Suspect]
     Active Substance: SIMVASTATIN
     Indication: Cerebral infarction
     Dosage: OR20 MG, QD
     Route: 001
     Dates: start: 20221103, end: 20221108
  34. SIMVASTATIN [Suspect]
     Active Substance: SIMVASTATIN
     Indication: Type 2 diabetes mellitus
  35. SIMVASTATIN [Suspect]
     Active Substance: SIMVASTATIN
     Indication: Convalescent
  36. SIMVASTATIN [Suspect]
     Active Substance: SIMVASTATIN
     Indication: Cerebral haemorrhage
  37. SIMVASTATIN [Suspect]
     Active Substance: SIMVASTATIN
     Indication: Hypertension
  38. DAPAGLIFLOZIN [Suspect]
     Active Substance: DAPAGLIFLOZIN
     Indication: Type 2 diabetes mellitus
     Dosage: 10 MG, QD
     Route: 048
     Dates: start: 20221103, end: 20221110
  39. DAPAGLIFLOZIN [Suspect]
     Active Substance: DAPAGLIFLOZIN
     Indication: Convalescent
  40. DAPAGLIFLOZIN [Suspect]
     Active Substance: DAPAGLIFLOZIN
     Indication: Cerebral haemorrhage
  41. DAPAGLIFLOZIN [Suspect]
     Active Substance: DAPAGLIFLOZIN
     Indication: Cerebral infarction
  42. DAPAGLIFLOZIN [Suspect]
     Active Substance: DAPAGLIFLOZIN
     Indication: Hypertension

REACTIONS (2)
  - Eczema [Unknown]
  - Rash maculo-papular [Unknown]

NARRATIVE: CASE EVENT DATE: 20221106
